FAERS Safety Report 5513862-1 (Version None)
Quarter: 2007Q4

REPORT INFORMATION
  Report Type: 
  Country: None (occurrence: None)
  Receive Date: 20071109
  Receipt Date: 20071109
  Transmission Date: 20080405
  Serious: Yes (Hospitalization)
  Sender: FDA-Public Use
  Company Number: None

PATIENT
  Sex: Female
  Weight: 43.2 kg

DRUGS (11)
  1. CYCLOPHOSPHAMIDE [Suspect]
     Dosage: 576 MG
  2. DOXIL [Suspect]
     Dosage: 38 MG
  3. RITUXIMAB (MOAB C2B8 ANTI CD20, CHIMERIC) [Suspect]
     Dosage: 480 MG
  4. VINCRISTINE SULFATE [Suspect]
     Dosage: 2 MG
  5. LACTULOSE [Concomitant]
  6. LEVTHROID [Concomitant]
  7. LOVENOX [Concomitant]
  8. COZAAR [Concomitant]
  9. DARVON [Concomitant]
  10. PEPCID [Concomitant]
  11. REGLAN [Concomitant]

REACTIONS (4)
  - MENTAL STATUS CHANGES [None]
  - MUSCULOSKELETAL PAIN [None]
  - REVERSIBLE POSTERIOR LEUKOENCEPHALOPATHY SYNDROME [None]
  - STATUS EPILEPTICUS [None]
